FAERS Safety Report 8111904-0 (Version None)
Quarter: 2012Q1

REPORT INFORMATION
  Report Type: 
  Country: None (occurrence: None)
  Receive Date: 20120203
  Receipt Date: 20110129
  Transmission Date: 20120608
  Serious: No
  Sender: FDA-Public Use
  Company Number: US-GLAXOSMITHKLINE-A0911511A

PATIENT
  Age: 41 Year
  Sex: Female
  Weight: 88.6 kg

DRUGS (1)
  1. ARIXTRA [Suspect]
     Indication: PRODUCT USED FOR UNKNOWN INDICATION
     Dosage: 7.5MG UNKNOWN
     Route: 058
     Dates: start: 20100401

REACTIONS (4)
  - INJECTION SITE PAIN [None]
  - PRODUCT QUALITY ISSUE [None]
  - NEEDLE ISSUE [None]
  - INJECTION SITE HAEMATOMA [None]
